FAERS Safety Report 11070591 (Version 1)
Quarter: 2015Q2

REPORT INFORMATION
  Report Type: Spontaneous
  Country: SE (occurrence: SE)
  Receive Date: 20150427
  Receipt Date: 20150427
  Transmission Date: 20150821
  Serious: Yes (Other)
  Sender: FDA-Public Use
  Company Number: SE-TEVA-556920ISR

PATIENT
  Age: 52 Year
  Sex: Female

DRUGS (1)
  1. METFORMIN [Suspect]
     Active Substance: METFORMIN HYDROCHLORIDE

REACTIONS (5)
  - Fatigue [Recovered/Resolved]
  - Pallor [Recovered/Resolved]
  - Palpitations [Recovered/Resolved]
  - Peripheral coldness [Recovered/Resolved]
  - Chest discomfort [Recovered/Resolved]
